FAERS Safety Report 7711888-0 (Version None)
Quarter: 2011Q3

REPORT INFORMATION
  Report Type: 
  Country: None (occurrence: None)
  Receive Date: 20110822
  Receipt Date: 20110804
  Transmission Date: 20111222
  Serious: Yes (Congenital Anomaly)
  Sender: FDA-Public Use
  Company Number: 2011MA011380

PATIENT
  Age: 2 Decade
  Sex: Male

DRUGS (1)
  1. SPIRONOLACTONE [Suspect]
     Indication: POLYCYSTIC OVARIES

REACTIONS (7)
  - PENOSCROTAL FUSION [None]
  - POST PROCEDURAL COMPLICATION [None]
  - CRYPTORCHISM [None]
  - BLOOD THYROID STIMULATING HORMONE INCREASED [None]
  - BLOOD TESTOSTERONE INCREASED [None]
  - GENITALIA EXTERNAL AMBIGUOUS [None]
  - MATERNAL DRUGS AFFECTING FOETUS [None]
